FAERS Safety Report 20777390 (Version 1)
Quarter: 2022Q2

REPORT INFORMATION
  Report Type: Spontaneous
  Country: BR (occurrence: None)
  Receive Date: 20220503
  Receipt Date: 20220503
  Transmission Date: 20220720
  Serious: Yes (Death)
  Sender: FDA-Public Use
  Company Number: BR-ROCHE-3087289

PATIENT
  Age: 68 Year
  Sex: Female
  Weight: 82 kg

DRUGS (1)
  1. RITUXIMAB [Suspect]
     Active Substance: RITUXIMAB
     Indication: Non-Hodgkin^s lymphoma
     Dosage: 500 MG - 100 MG (AS REPORTED)
     Route: 065
     Dates: start: 20201024, end: 20201024

REACTIONS (4)
  - Hyperhidrosis [Fatal]
  - Tachycardia [Fatal]
  - Tremor [Fatal]
  - Dyspnoea [Fatal]

NARRATIVE: CASE EVENT DATE: 20201024
